FAERS Safety Report 10668892 (Version 2)
Quarter: 2015Q1

REPORT INFORMATION
  Report Type: Spontaneous
  Country: JP (occurrence: JP)
  Receive Date: 20141222
  Receipt Date: 20150311
  Transmission Date: 20150720
  Serious: Yes (Hospitalization, Disabling)
  Sender: FDA-Public Use
  Company Number: JP-BAYER-2014-187099

PATIENT
  Age: 59 Year
  Sex: Male
  Weight: 55 kg

DRUGS (11)
  1. VASOLAN [Concomitant]
     Active Substance: VERAPAMIL HYDROCHLORIDE
     Dosage: UNK
     Dates: start: 20091001
  2. NEXAVAR [Suspect]
     Active Substance: SORAFENIB
     Indication: HEPATOCELLULAR CARCINOMA
     Dosage: DAILY DOSE 200 MG
     Route: 048
     Dates: start: 20091106
  3. OMEPRAZOLE. [Concomitant]
     Active Substance: OMEPRAZOLE
     Dosage: UNK
     Dates: start: 20091001
  4. GLYCYRON [AMINOACETIC ACID,DL-METHIONINE,GLYCYRRHIZIC ACID] [Concomitant]
     Dosage: UNK
     Route: 048
     Dates: start: 20091001
  5. AMINOLEBAN [Concomitant]
     Active Substance: AMINO ACIDS
     Dosage: UNK
     Dates: start: 20091001
  6. URSO [Concomitant]
     Active Substance: URSODIOL
     Dosage: UNK
     Route: 048
     Dates: start: 20091001
  7. ALLOPURINOL. [Concomitant]
     Active Substance: ALLOPURINOL
     Dosage: UNK
     Route: 048
     Dates: start: 20091001
  8. AMLODIPINE [Concomitant]
     Active Substance: AMLODIPINE BESYLATE
     Dosage: UNK
     Route: 048
     Dates: start: 20091001
  9. LIVACT [Concomitant]
     Active Substance: AMINO ACIDS
     Dosage: UNK
     Route: 048
     Dates: start: 20091001
  10. BROTIZOLAM [Concomitant]
     Active Substance: BROTIZOLAM
     Dosage: UNK
     Route: 048
     Dates: start: 20091001
  11. CANDESARTAN [Concomitant]
     Active Substance: CANDESARTAN
     Dosage: UNK
     Route: 048
     Dates: start: 20091001

REACTIONS (4)
  - Laryngeal cancer [Recovering/Resolving]
  - Arteriosclerosis [None]
  - Atrial fibrillation [Recovering/Resolving]
  - Renal infarct [Recovering/Resolving]

NARRATIVE: CASE EVENT DATE: 20140108
